FAERS Safety Report 26104552 (Version 2)
Quarter: 2025Q4

REPORT INFORMATION
  Report Type: Report from Study
  Country: JP (occurrence: JP)
  Receive Date: 20251130
  Receipt Date: 20251219
  Transmission Date: 20260117
  Serious: Yes (Other)
  Sender: JOHNSON AND JOHNSON
  Company Number: JP-JNJFOC-20251160516

PATIENT
  Age: 85 Year
  Sex: Male
  Weight: 53.80 kg

DRUGS (25)
  1. SIRTURO [Suspect]
     Active Substance: BEDAQUILINE FUMARATE
     Indication: Product used for unknown indication
     Route: 048
     Dates: start: 20250804, end: 20250817
  2. SIRTURO [Suspect]
     Active Substance: BEDAQUILINE FUMARATE
     Route: 048
     Dates: start: 20250818, end: 20250821
  3. SIRTURO [Suspect]
     Active Substance: BEDAQUILINE FUMARATE
     Route: 048
     Dates: start: 20250910, end: 20250913
  4. SIRTURO [Suspect]
     Active Substance: BEDAQUILINE FUMARATE
     Route: 048
     Dates: start: 20251107, end: 20251113
  5. LINEZOLID [Suspect]
     Active Substance: LINEZOLID
     Indication: Product used for unknown indication
     Route: 048
     Dates: start: 20250722, end: 20250821
  6. LINEZOLID [Suspect]
     Active Substance: LINEZOLID
     Route: 048
     Dates: start: 20250902, end: 20250913
  7. LINEZOLID [Suspect]
     Active Substance: LINEZOLID
     Route: 048
     Dates: start: 20250918, end: 20250921
  8. LINEZOLID [Suspect]
     Active Substance: LINEZOLID
     Route: 048
     Dates: start: 20251002, end: 20251004
  9. LINEZOLID [Suspect]
     Active Substance: LINEZOLID
     Dosage: DOSE UNKNOWN
     Route: 048
  10. CYCLOSERINE [Concomitant]
     Active Substance: CYCLOSERINE
     Indication: Product used for unknown indication
     Dates: start: 20250722, end: 20250821
  11. CYCLOSERINE [Concomitant]
     Active Substance: CYCLOSERINE
     Dates: start: 20250902, end: 20250913
  12. CYCLOSERINE [Concomitant]
     Active Substance: CYCLOSERINE
     Dates: start: 20250918, end: 20250921
  13. CYCLOSERINE [Concomitant]
     Active Substance: CYCLOSERINE
     Dates: start: 20251002, end: 20251004
  14. CYCLOSERINE [Concomitant]
     Active Substance: CYCLOSERINE
     Dates: start: 20251015, end: 20251029
  15. CYCLOSERINE [Concomitant]
     Active Substance: CYCLOSERINE
     Dates: start: 20251107, end: 20251113
  16. CYCLOSERINE [Concomitant]
     Active Substance: CYCLOSERINE
     Dosage: DOSE UNKNOWN
  17. VITAMIN B6 [Concomitant]
     Active Substance: PYRIDOXINE HYDROCHLORIDE
     Indication: Product used for unknown indication
     Dosage: DOSE UNKNOWN
     Dates: start: 20250722, end: 20250821
  18. VITAMIN B6 [Concomitant]
     Active Substance: PYRIDOXINE HYDROCHLORIDE
     Dosage: DOSE UNKNOWN
     Dates: start: 20250902, end: 20250913
  19. VITAMIN B6 [Concomitant]
     Active Substance: PYRIDOXINE HYDROCHLORIDE
     Dosage: DOSE UNKNOWN
     Dates: start: 20250918, end: 20250921
  20. VITAMIN B6 [Concomitant]
     Active Substance: PYRIDOXINE HYDROCHLORIDE
     Dosage: DOSE UNKNOWN
     Dates: start: 20251002, end: 20251004
  21. VITAMIN B6 [Concomitant]
     Active Substance: PYRIDOXINE HYDROCHLORIDE
     Dosage: DOSE UNKNOWN
     Dates: start: 20251015, end: 20251029
  22. VITAMIN B6 [Concomitant]
     Active Substance: PYRIDOXINE HYDROCHLORIDE
     Dosage: DOSE UNKNOWN
     Dates: start: 20251107, end: 20251113
  23. DELAMANID [Concomitant]
     Active Substance: DELAMANID
     Indication: Product used for unknown indication
     Dates: start: 20250728, end: 20250821
  24. DELAMANID [Concomitant]
     Active Substance: DELAMANID
     Dates: start: 20251015, end: 20251029
  25. CLOFAZIMINE [Concomitant]
     Active Substance: CLOFAZIMINE
     Indication: Product used for unknown indication
     Dates: start: 20250722, end: 20250821

REACTIONS (2)
  - Renal impairment [Recovered/Resolved]
  - Electrocardiogram QT prolonged [Recovered/Resolved]

NARRATIVE: CASE EVENT DATE: 20250801
